FAERS Safety Report 11091053 (Version 1)
Quarter: 2015Q2

REPORT INFORMATION
  Report Type: Spontaneous
  Country: GB (occurrence: GB)
  Receive Date: 20150505
  Receipt Date: 20150505
  Transmission Date: 20150821
  Serious: Yes (Disabling)
  Sender: FDA-Public Use
  Company Number: GB-CIPLA LTD.-2015GB03448

PATIENT

DRUGS (9)
  1. BENDROFLUMETHIAZIDE [Concomitant]
     Active Substance: BENDROFLUMETHIAZIDE
     Dosage: 1 DF, QD IN MORNING
     Dates: start: 20140826
  2. CETIRIZINE [Suspect]
     Active Substance: CETIRIZINE HYDROCHLORIDE
     Dosage: UNK
     Dates: start: 20150409
  3. CO-AMOXICLAV [Concomitant]
     Active Substance: AMOXICILLIN\CLAVULANIC ACID
     Dosage: 1 DF, TID
     Dates: start: 20150417
  4. OTRIVINE [Concomitant]
     Dosage: 1 GTT, TID
     Dates: start: 20150310, end: 20150317
  5. TAMOXIFEN [Concomitant]
     Active Substance: TAMOXIFEN
     Dosage: USE AS DIRECTED
     Dates: start: 20150305
  6. NASONEX [Concomitant]
     Active Substance: MOMETASONE FUROATE
     Dosage: 4 DF, QD 2 PUFFS IN EACH NOSTRIL
     Route: 045
     Dates: start: 20140130
  7. SIMVASTATIN. [Concomitant]
     Active Substance: SIMVASTATIN
     Dosage: 1 DF, QD AT NIGHT
     Dates: start: 20140130
  8. ADCAL [Concomitant]
     Dosage: 2 DF, BID
     Dates: start: 20140130
  9. HYPROMELLOSE [Concomitant]
     Active Substance: HYPROMELLOSES
     Dosage: 1 GTT ONE DROP AS NEEDED TO BE TAKEN  THREE  TIMES DAILY.
     Dates: start: 20150415

REACTIONS (1)
  - Sedation [Recovered/Resolved]

NARRATIVE: CASE EVENT DATE: 20150420
